FAERS Safety Report 4961956-1 (Version None)
Quarter: 2006Q2

REPORT INFORMATION
  Report Type: 
  Country: None (occurrence: None)
  Receive Date: 20060404
  Receipt Date: 20050107
  Transmission Date: 20061013
  Serious: Yes (Hospitalization, Other)
  Sender: FDA-Public Use
  Company Number: US-MERCK-0501USA01883

PATIENT
  Sex: Female
  Weight: 91 kg

DRUGS (4)
  1. VIOXX [Suspect]
     Indication: OSTEOARTHRITIS
     Route: 048
     Dates: start: 20010920, end: 20020315
  2. VIOXX [Suspect]
     Indication: ARTHRITIS
     Route: 048
     Dates: start: 20010920, end: 20020315
  3. VIOXX [Suspect]
     Route: 048
     Dates: start: 20010920, end: 20020315
  4. VIOXX [Suspect]
     Route: 048
     Dates: start: 20010920, end: 20020315

REACTIONS (16)
  - ABDOMINAL PAIN [None]
  - BREAST CYST [None]
  - BRONCHITIS [None]
  - CARDIAC DISORDER [None]
  - CARDIAC FAILURE CONGESTIVE [None]
  - ENDOCARDITIS [None]
  - HAEMORRHAGIC CYST [None]
  - HALLUCINATION [None]
  - HYPERSENSITIVITY [None]
  - MYOCARDIAL INFARCTION [None]
  - OVARIAN CYST [None]
  - OVERDOSE [None]
  - PNEUMONIA [None]
  - THROMBOSIS [None]
  - TRICHOMONIASIS [None]
  - VOMITING [None]
